FAERS Safety Report 6900752-2 (Version None)
Quarter: 2010Q3

REPORT INFORMATION
  Report Type: 
  Country: None (occurrence: None)
  Receive Date: 20100730
  Receipt Date: 20100715
  Transmission Date: 20110219
  Serious: Yes (Other)
  Sender: FDA-Public Use
  Company Number: ES-1182673

PATIENT
  Age: 4 Year
  Sex: Female

DRUGS (2)
  1. TROPICAMIDE [Suspect]
     Indication: MYDRIASIS
     Route: 047
     Dates: start: 20100623, end: 20100626
  2. CYCLOPENTOLATE HYDROCHLORIDE [Suspect]
     Indication: MYDRIASIS
     Route: 047
     Dates: start: 20100623, end: 20100626

REACTIONS (5)
  - DISORIENTATION [None]
  - GAIT DISTURBANCE [None]
  - HALLUCINATION, VISUAL [None]
  - MYDRIASIS [None]
  - VERBIGERATION [None]
